FAERS Safety Report 14276442 (Version 1)
Quarter: 2017Q4

REPORT INFORMATION
  Report Type: Spontaneous
  Country: IN (occurrence: IN)
  Receive Date: 20171212
  Receipt Date: 20171212
  Transmission Date: 20180321
  Serious: Yes (Hospitalization, Other)
  Sender: FDA-Public Use
  Company Number: IN-009507513-1712IND002987

PATIENT
  Age: 17 Year
  Sex: Female

DRUGS (1)
  1. JANUMET [Suspect]
     Active Substance: METFORMIN HYDROCHLORIDE\SITAGLIPTIN PHOSPHATE
     Dosage: EIGHT TO NINE 50/500 MG TABLETS AT AROUND MIDNIGHT
     Route: 048

REACTIONS (3)
  - Hypoglycaemia [Recovered/Resolved]
  - Overdose [Unknown]
  - Seizure [Recovered/Resolved]
